FAERS Safety Report 7446372-5 (Version None)
Quarter: 2011Q2

REPORT INFORMATION
  Report Type: 
  Country: None (occurrence: None)
  Receive Date: 20110429
  Receipt Date: 20100831
  Transmission Date: 20111010
  Serious: No
  Sender: FDA-Public Use
  Company Number: US-ASTRAZENECA-2010SE40876

PATIENT
  Age: 71 Year
  Sex: Male
  Weight: 77.1 kg

DRUGS (6)
  1. PREDNISONE [Concomitant]
     Indication: CHRONIC OBSTRUCTIVE PULMONARY DISEASE
  2. XANAX [Concomitant]
     Indication: INSOMNIA
  3. IPRATROPIUM BROMIDE [Concomitant]
     Indication: CHRONIC OBSTRUCTIVE PULMONARY DISEASE
  4. NEXIUM [Suspect]
     Indication: GASTROOESOPHAGEAL REFLUX DISEASE
     Route: 048
     Dates: start: 20100829
  5. ALBUTEROL [Concomitant]
     Indication: CHRONIC OBSTRUCTIVE PULMONARY DISEASE
  6. LEXAPRO [Concomitant]

REACTIONS (6)
  - UPPER-AIRWAY COUGH SYNDROME [None]
  - SINUSITIS [None]
  - MUSCULOSKELETAL STIFFNESS [None]
  - BACK PAIN [None]
  - HEADACHE [None]
  - FATIGUE [None]
